FAERS Safety Report 13345496 (Version 16)
Quarter: 2018Q3

REPORT INFORMATION
  Report Type: Spontaneous
  Country: US (occurrence: US)
  Receive Date: 20170317
  Receipt Date: 20180928
  Transmission Date: 20181010
  Serious: Yes (Hospitalization, Other)
  Sender: FDA-Public Use
  Company Number: US-BIOGEN-2017BI00373184

PATIENT
  Age: 69 Year
  Sex: Female
  Weight: 86.62 kg

DRUGS (63)
  1. AMPYRA [Concomitant]
     Active Substance: DALFAMPRIDINE
     Route: 048
     Dates: start: 20160308
  2. VITAMIN D3 [Concomitant]
     Active Substance: CHOLECALCIFEROL
     Indication: PRODUCT USED FOR UNKNOWN INDICATION
     Route: 048
  3. DIAZEPAM. [Concomitant]
     Active Substance: DIAZEPAM
     Indication: PRODUCT USED FOR UNKNOWN INDICATION
     Route: 048
  4. GABAPENTIN. [Concomitant]
     Active Substance: GABAPENTIN
     Route: 048
  5. VITAMIN C [Concomitant]
     Active Substance: ASCORBIC ACID
     Indication: PRODUCT USED FOR UNKNOWN INDICATION
     Route: 048
  6. DIPHENOXYLATE HYDROCHLORIDE AND ATROPINE SULFATE [Concomitant]
     Active Substance: ATROPINE SULFATE\DIPHENOXYLATE HYDROCHLORIDE
     Indication: DIARRHOEA
     Dosage: 2.5?0.0.5MG 1?2 EVERY 6?8HRS
     Route: 065
  7. AMBIEN [Concomitant]
     Active Substance: ZOLPIDEM TARTRATE
     Indication: PRODUCT USED FOR UNKNOWN INDICATION
     Dosage: ONE TAB AT BEDTIME AS NEEDED
     Route: 048
     Dates: start: 20110610
  8. AMITRIPTYLINE HYDROCHLORIDE. [Concomitant]
     Active Substance: AMITRIPTYLINE HYDROCHLORIDE
     Indication: PRODUCT USED FOR UNKNOWN INDICATION
     Dosage: AT BEDTIME
     Route: 048
  9. DIAZEPAM. [Concomitant]
     Active Substance: DIAZEPAM
     Dosage: 4 TABLETS AT BEDTIME
     Route: 048
  10. MYRBETRIQ [Concomitant]
     Active Substance: MIRABEGRON
     Indication: PRODUCT USED FOR UNKNOWN INDICATION
     Route: 048
  11. ZANAFLEX [Concomitant]
     Active Substance: TIZANIDINE HYDROCHLORIDE
     Route: 048
  12. ZANAFLEX [Concomitant]
     Active Substance: TIZANIDINE HYDROCHLORIDE
     Dosage: 1.5 TAB TID AND 2.5 TAB AT BEDTIME
     Route: 048
  13. TRIAMCINOLONE ACETONIDE. [Concomitant]
     Active Substance: TRIAMCINOLONE ACETONIDE
     Indication: URETHRITIS NONINFECTIVE
     Route: 061
     Dates: start: 20160503
  14. FLUTICASONE PROPIONATE. [Concomitant]
     Active Substance: FLUTICASONE PROPIONATE
     Indication: PRODUCT USED FOR UNKNOWN INDICATION
     Dosage: 2 SPRAYS EACH NOSTRIL EVERYDAY
     Route: 045
  15. PROVIGIL [Concomitant]
     Active Substance: MODAFINIL
     Indication: PRODUCT USED FOR UNKNOWN INDICATION
     Dosage: 1 TAB IN THE AM
     Route: 048
  16. AMPYRA [Concomitant]
     Active Substance: DALFAMPRIDINE
     Route: 048
     Dates: start: 20161208
  17. BACLOFEN. [Concomitant]
     Active Substance: BACLOFEN
     Indication: PRODUCT USED FOR UNKNOWN INDICATION
     Route: 048
     Dates: start: 20110610
  18. ETODOLAC. [Concomitant]
     Active Substance: ETODOLAC
     Indication: PRODUCT USED FOR UNKNOWN INDICATION
     Route: 048
  19. MACRODANTIN [Concomitant]
     Active Substance: NITROFURANTOIN
     Indication: PRODUCT USED FOR UNKNOWN INDICATION
     Route: 048
  20. RESTASIS [Concomitant]
     Active Substance: CYCLOSPORINE
     Indication: PRODUCT USED FOR UNKNOWN INDICATION
     Route: 047
     Dates: start: 20120420
  21. TRAMADOL HCL [Concomitant]
     Active Substance: TRAMADOL HYDROCHLORIDE
     Indication: PRODUCT USED FOR UNKNOWN INDICATION
     Dosage: AS NEEDED
     Route: 048
     Dates: start: 20150928
  22. TRAMADOL HCL [Concomitant]
     Active Substance: TRAMADOL HYDROCHLORIDE
     Dosage: AS NEEDED
     Route: 048
  23. VITAMIN B12 [Concomitant]
     Active Substance: CYANOCOBALAMIN
     Indication: PRODUCT USED FOR UNKNOWN INDICATION
     Route: 048
     Dates: start: 20130408
  24. OXYBUTYNIN. [Concomitant]
     Active Substance: OXYBUTYNIN CHLORIDE
     Indication: PRODUCT USED FOR UNKNOWN INDICATION
     Dosage: 3.9MG/24HR FOR BLADDER
     Route: 065
  25. OCUVITE [Concomitant]
     Active Substance: VITAMINS
     Indication: PRODUCT USED FOR UNKNOWN INDICATION
     Route: 048
  26. MACRODANTIN [Concomitant]
     Active Substance: NITROFURANTOIN
     Indication: PRODUCT USED FOR UNKNOWN INDICATION
     Route: 048
     Dates: start: 20121221
  27. TYSABRI [Suspect]
     Active Substance: NATALIZUMAB
     Route: 042
     Dates: start: 20110610
  28. DIAZEPAM. [Concomitant]
     Active Substance: DIAZEPAM
     Dosage: 1 TAB 3 TIMES A DAY
     Route: 048
  29. OMEPRAZOLE. [Concomitant]
     Active Substance: OMEPRAZOLE
     Indication: PRODUCT USED FOR UNKNOWN INDICATION
     Dosage: 1 CAPSULE HALF HOUR BEFORE BREAKFAST AND 1 HALF AN HOUR BEFORE BEDTIME
     Route: 048
  30. KLOR?CON [Concomitant]
     Active Substance: POTASSIUM CHLORIDE
     Indication: PRODUCT USED FOR UNKNOWN INDICATION
     Route: 048
  31. XOPENEX HFA [Concomitant]
     Active Substance: LEVALBUTEROL TARTRATE
     Indication: COUGH
     Route: 065
  32. BENZONATATE. [Concomitant]
     Active Substance: BENZONATATE
     Dosage: AS NEEDED
     Route: 048
  33. EUCRISA [Concomitant]
     Active Substance: CRISABOROLE
     Indication: PRODUCT USED FOR UNKNOWN INDICATION
     Dosage: APPLY DAILY TO AREAS ON FEET
     Route: 065
  34. AMITIZA [Concomitant]
     Active Substance: LUBIPROSTONE
     Indication: PRODUCT USED FOR UNKNOWN INDICATION
     Route: 048
     Dates: start: 20160303
  35. HYOSCYAMINE SULFATE. [Concomitant]
     Active Substance: HYOSCYAMINE SULFATE
     Indication: PRODUCT USED FOR UNKNOWN INDICATION
     Dosage: AS NEEDED
     Route: 048
     Dates: start: 20111207
  36. ZANAFLEX [Concomitant]
     Active Substance: TIZANIDINE HYDROCHLORIDE
     Indication: PRODUCT USED FOR UNKNOWN INDICATION
     Dosage: 1.5 TAB 3X A DAY; 2.5 TIMES AT BEDTIME
     Route: 048
     Dates: start: 201112
  37. ZANAFLEX [Concomitant]
     Active Substance: TIZANIDINE HYDROCHLORIDE
     Route: 048
     Dates: start: 20130611
  38. TYSABRI [Suspect]
     Active Substance: NATALIZUMAB
     Route: 042
  39. JANUVIA [Concomitant]
     Active Substance: SITAGLIPTIN PHOSPHATE
     Indication: BLOOD GLUCOSE ABNORMAL
     Route: 048
  40. ZANAFLEX [Concomitant]
     Active Substance: TIZANIDINE HYDROCHLORIDE
     Indication: PRODUCT USED FOR UNKNOWN INDICATION
     Route: 048
  41. TRIAMCINOLONE ACETONIDE. [Concomitant]
     Active Substance: TRIAMCINOLONE ACETONIDE
     Route: 061
     Dates: start: 20150728
  42. DICLOFENAC SODIUM. [Concomitant]
     Active Substance: DICLOFENAC SODIUM
     Indication: PRODUCT USED FOR UNKNOWN INDICATION
     Route: 048
  43. HYDROCODONE AND ACETAMINOPHEN [Concomitant]
     Active Substance: ACETAMINOPHEN\HYDROCODONE
     Indication: PRODUCT USED FOR UNKNOWN INDICATION
     Route: 065
  44. VITAMIN D3 [Concomitant]
     Active Substance: CHOLECALCIFEROL
     Route: 048
     Dates: start: 20150504
  45. DIAZEPAM. [Concomitant]
     Active Substance: DIAZEPAM
     Route: 048
     Dates: start: 20120918
  46. FUROSEMIDE. [Concomitant]
     Active Substance: FUROSEMIDE
     Indication: PRODUCT USED FOR UNKNOWN INDICATION
     Dosage: EVERY MORNING
     Route: 048
  47. GABAPENTIN. [Concomitant]
     Active Substance: GABAPENTIN
     Indication: PRODUCT USED FOR UNKNOWN INDICATION
     Dosage: AT BEDTIME
     Route: 048
  48. HYDROCODONE?ACETAMINOPHEN [Concomitant]
     Active Substance: ACETAMINOPHEN\HYDROCODONE
     Indication: PAIN
     Dosage: 5?325 MG ONE TAB AT BEDTIME AS NEEDED FOR PAIN
     Route: 048
     Dates: start: 20120420
  49. HYDROXYZINE HYDROCHLORIDE. [Concomitant]
     Active Substance: HYDROXYZINE HYDROCHLORIDE
     Indication: PRURITUS
     Route: 048
     Dates: start: 20160729
  50. LACTULOSE. [Concomitant]
     Active Substance: LACTULOSE
     Indication: PRODUCT USED FOR UNKNOWN INDICATION
     Dosage: 10GM/15ML (1 TABLESPOON)
     Route: 048
     Dates: start: 20131216
  51. ZANAFLEX [Concomitant]
     Active Substance: TIZANIDINE HYDROCHLORIDE
     Dosage: 6 MG PER DAY
     Route: 048
     Dates: start: 201112
  52. KLOR?CON [Concomitant]
     Active Substance: POTASSIUM CHLORIDE
     Indication: PRODUCT USED FOR UNKNOWN INDICATION
     Dosage: M10 MEQ CR
     Route: 065
     Dates: start: 20121206
  53. BENZONATATE. [Concomitant]
     Active Substance: BENZONATATE
     Indication: COUGH
     Route: 048
  54. TYSABRI [Suspect]
     Active Substance: NATALIZUMAB
     Indication: MULTIPLE SCLEROSIS
     Dosage: INFUSED OVER 1 HOUR
     Route: 042
     Dates: start: 20080925
  55. AMPYRA [Concomitant]
     Active Substance: DALFAMPRIDINE
     Indication: GAIT DISTURBANCE
     Route: 048
     Dates: start: 2013
  56. FOSAMAX [Concomitant]
     Active Substance: ALENDRONATE SODIUM
     Indication: PRODUCT USED FOR UNKNOWN INDICATION
     Dosage: IN THE AFTERNOON
     Route: 048
  57. FUROSEMIDE. [Concomitant]
     Active Substance: FUROSEMIDE
     Dosage: IN THE AFTERNOON
     Route: 048
  58. GABAPENTIN. [Concomitant]
     Active Substance: GABAPENTIN
     Dosage: 2 CAP TID
     Route: 048
     Dates: start: 20111207
  59. OXYTROL [Concomitant]
     Active Substance: OXYBUTYNIN
     Indication: BLADDER DISORDER
     Route: 062
  60. OXYTROL [Concomitant]
     Active Substance: OXYBUTYNIN
     Route: 062
  61. XOPENEX HFA [Concomitant]
     Active Substance: LEVALBUTEROL TARTRATE
     Dosage: 1.25MG/3ML AS NEEDED
     Route: 055
  62. ALENDRONATE SODIUM. [Concomitant]
     Active Substance: ALENDRONATE SODIUM
     Indication: PRODUCT USED FOR UNKNOWN INDICATION
     Route: 048
  63. MAGIC SWIZZLE [Concomitant]
     Indication: PRODUCT USED FOR UNKNOWN INDICATION
     Dosage: SWISH AND SWALLOW EVERY 4?6 HOURS AS NEEDED
     Route: 065

REACTIONS (2)
  - Invasive ductal breast carcinoma [Recovered/Resolved]
  - Opportunistic infection [Unknown]

NARRATIVE: CASE EVENT DATE: 20160906
